FAERS Safety Report 18355719 (Version 1)
Quarter: 2020Q4

REPORT INFORMATION
  Report Type: Spontaneous
  Country: CN (occurrence: CN)
  Receive Date: 20201007
  Receipt Date: 20201007
  Transmission Date: 20210114
  Serious: Yes (Other)
  Sender: FDA-Public Use
  Company Number: CN-TOPROL-202000029

PATIENT
  Age: 74 Year
  Sex: Female
  Weight: 48.8 kg

DRUGS (3)
  1. BETALOC ZOK [Suspect]
     Active Substance: METOPROLOL SUCCINATE
     Indication: CARDIAC DISCOMFORT
     Route: 048
     Dates: start: 20200809, end: 20200826
  2. BETALOC ZOK [Suspect]
     Active Substance: METOPROLOL SUCCINATE
     Indication: CARDIAC DISCOMFORT
     Route: 048
     Dates: start: 20200827, end: 20200911
  3. BETALOC ZOK [Suspect]
     Active Substance: METOPROLOL SUCCINATE
     Indication: CARDIAC DISCOMFORT
     Route: 048
     Dates: start: 20200912

REACTIONS (2)
  - Electrocardiogram PR prolongation [Recovering/Resolving]
  - Atrioventricular block first degree [Recovering/Resolving]
